FAERS Safety Report 18769171 (Version 3)
Quarter: 2022Q2

REPORT INFORMATION
  Report Type: Report from Study
  Country: PA (occurrence: PA)
  Receive Date: 20210121
  Receipt Date: 20220504
  Transmission Date: 20220721
  Serious: Yes (Other)
  Sender: FDA-Public Use
  Company Number: PA-NOVARTISPH-PHHY2019PA140011

PATIENT
  Age: 52 Year
  Sex: Female

DRUGS (4)
  1. GILENYA [Suspect]
     Active Substance: FINGOLIMOD HYDROCHLORIDE
     Indication: Multiple sclerosis
     Dosage: 0.5 MG, QD
     Route: 048
     Dates: start: 20181106
  2. GILENYA [Suspect]
     Active Substance: FINGOLIMOD HYDROCHLORIDE
     Dosage: 0.5 MG, QD
     Route: 048
     Dates: start: 20211106
  3. IRBESARTAN [Concomitant]
     Active Substance: IRBESARTAN
     Indication: Hypertension
     Dosage: 300 MG, QD
     Route: 048
     Dates: start: 2018
  4. LEVOTHYROXINE [Concomitant]
     Active Substance: LEVOTHYROXINE
     Indication: Hypothyroidism
     Dosage: 0.1 MG, QD
     Route: 048
     Dates: start: 2012

REACTIONS (12)
  - Asphyxia [Unknown]
  - Depression [Not Recovered/Not Resolved]
  - Anxiety [Not Recovered/Not Resolved]
  - Nasal congestion [Recovering/Resolving]
  - Nasopharyngitis [Recovering/Resolving]
  - Hypoacusis [Unknown]
  - Boredom [Unknown]
  - Depressed mood [Unknown]
  - Insomnia [Not Recovered/Not Resolved]
  - Stress [Unknown]
  - Feeling abnormal [Unknown]
  - Irritability [Unknown]

NARRATIVE: CASE EVENT DATE: 20190101
